FAERS Safety Report 6880602-3 (Version None)
Quarter: 2010Q3

REPORT INFORMATION
  Report Type: 
  Country: None (occurrence: None)
  Receive Date: 20100727
  Receipt Date: 20091208
  Transmission Date: 20110219
  Serious: No
  Sender: FDA-Public Use
  Company Number: A0817341A

PATIENT
  Sex: Male

DRUGS (2)
  1. ZANTAC [Suspect]
     Route: 065
  2. PLAVIX [Suspect]
     Indication: STENT PLACEMENT
     Route: 065

REACTIONS (6)
  - DRUG INEFFECTIVE [None]
  - HEART RATE DECREASED [None]
  - HYPOAESTHESIA [None]
  - HYPOAESTHESIA FACIAL [None]
  - RASH [None]
  - SENSITIVITY OF TEETH [None]
